FAERS Safety Report 7158561-8 (Version None)
Quarter: 2010Q4

REPORT INFORMATION
  Report Type: 
  Country: None (occurrence: None)
  Receive Date: 20101214
  Receipt Date: 20100524
  Transmission Date: 20110411
  Serious: No
  Sender: FDA-Public Use
  Company Number: US-ASTRAZENECA-2010SE23638

PATIENT
  Sex: Male
  Weight: 136.1 kg

DRUGS (5)
  1. CRESTOR [Suspect]
     Indication: BLOOD CHOLESTEROL INCREASED
     Route: 048
     Dates: start: 20060101
  2. SYNTHROID [Concomitant]
  3. DEPAKOTE [Concomitant]
  4. ATIVAN [Concomitant]
  5. VICODIN [Concomitant]

REACTIONS (5)
  - ANAEMIA [None]
  - CARPAL TUNNEL SYNDROME [None]
  - DYSSTASIA [None]
  - HYPOAESTHESIA [None]
  - MYALGIA [None]
